FAERS Safety Report 4519350-3 (Version None)
Quarter: 2004Q4

REPORT INFORMATION
  Report Type: 
  Country: None (occurrence: None)
  Receive Date: 20041202
  Receipt Date: 20041119
  Transmission Date: 20050328
  Serious: Yes (Other)
  Sender: FDA-Public Use
  Company Number: 2004097796

PATIENT
  Age: 72 Year
  Sex: Female
  Weight: 79.3795 kg

DRUGS (5)
  1. BEXTRA [Suspect]
     Indication: OSTEOARTHRITIS
     Dosage: 10 MG (10 MG, QD INTERVAL:  EVERY DAY), ORAL
     Route: 048
  2. PAXIL [Concomitant]
  3. FOLIC ACID [Concomitant]
  4. CLONAZEPAM [Concomitant]
  5. ASACOL [Concomitant]

REACTIONS (2)
  - BREAST CANCER FEMALE [None]
  - SHOULDER ARTHROPLASTY [None]
